FAERS Safety Report 8137551-2 (Version None)
Quarter: 2012Q1

REPORT INFORMATION
  Report Type: 
  Country: None (occurrence: None)
  Receive Date: 20120215
  Receipt Date: 20120203
  Transmission Date: 20120608
  Serious: Yes (Death)
  Sender: FDA-Public Use
  Company Number: JP-UCBSA-050737

PATIENT
  Age: 72 Year
  Sex: Male
  Weight: 65 kg

DRUGS (2)
  1. DEPAKENE [Concomitant]
     Indication: SIMPLE PARTIAL SEIZURES
     Dosage: DAILY DOSE: 600 MG
     Route: 048
     Dates: start: 20110929, end: 20111103
  2. KEPPRA [Suspect]
     Indication: SIMPLE PARTIAL SEIZURES
     Route: 048
     Dates: start: 20110929, end: 20111103

REACTIONS (1)
  - LUNG NEOPLASM MALIGNANT [None]
